FAERS Safety Report 24110396 (Version 1)
Quarter: 2024Q3

REPORT INFORMATION
  Report Type: Spontaneous
  Country: CN (occurrence: CN)
  Receive Date: 20240718
  Receipt Date: 20240718
  Transmission Date: 20241016
  Serious: Yes (Hospitalization)
  Sender: PAREXEL
  Company Number: CN-SHANGHAI JUNSHI BIOSCIENCES CO., LTD.-CN2024010583

PATIENT

DRUGS (4)
  1. TORIPALIMAB [Suspect]
     Active Substance: TORIPALIMAB
     Indication: Nasopharyngeal cancer
     Dosage: 240 MG (D0)
     Route: 041
     Dates: start: 20240507, end: 20240507
  2. GEMCITABINE HYDROCHLORIDE [Suspect]
     Active Substance: GEMCITABINE HYDROCHLORIDE
     Indication: Nasopharyngeal cancer
     Dosage: 1.4 G (D1, D8), Q8D
     Route: 041
     Dates: start: 20240507
  3. ENDOSTATIN [Suspect]
     Active Substance: ENDOSTATIN
     Indication: Nasopharyngeal cancer
     Dosage: 15 MG (D1-D8), QD
     Route: 041
     Dates: start: 20240507, end: 20240513
  4. CISPLATIN [Suspect]
     Active Substance: CISPLATIN
     Indication: Nasopharyngeal cancer
     Dosage: 40 MG (D1-D3), QD
     Route: 041
     Dates: start: 20240507, end: 20240510

REACTIONS (1)
  - White blood cell count decreased [Recovered/Resolved]

NARRATIVE: CASE EVENT DATE: 20240512
